FAERS Safety Report 10143489 (Version 3)
Quarter: 2014Q2

REPORT INFORMATION
  Report Type: Spontaneous
  Country: US (occurrence: US)
  Receive Date: 20140430
  Receipt Date: 20140519
  Transmission Date: 20141212
  Serious: No
  Sender: FDA-Public Use
  Company Number: US-PFIZER INC-2014115818

PATIENT
  Age: 86 Year
  Sex: Male
  Weight: 69.84 kg

DRUGS (5)
  1. REVATIO [Suspect]
     Indication: PULMONARY HYPERTENSION
     Dosage: 20 MG, 3X/DAY
     Route: 048
     Dates: start: 2003
  2. METOPROLOL [Concomitant]
     Indication: HYPERTENSION
     Dosage: 25 MG (BY TAKING HALF TABLET OF 50MG), 2X/DAY
  3. WARFARIN [Concomitant]
     Dosage: 2 MG, 1X/DAY
  4. LISINOPRIL [Concomitant]
     Dosage: UNK
  5. ATORVASTATIN [Concomitant]
     Dosage: UNK

REACTIONS (2)
  - Muscle spasms [Recovered/Resolved]
  - Pain in extremity [Recovered/Resolved]
